FAERS Safety Report 23976783 (Version 3)
Quarter: 2024Q4

REPORT INFORMATION
  Report Type: Spontaneous
  Country: KR (occurrence: KR)
  Receive Date: 20240614
  Receipt Date: 20241122
  Transmission Date: 20250114
  Serious: No
  Sender: PFIZER
  Company Number: KR-PFIZER INC-PV202400076327

PATIENT
  Sex: Male

DRUGS (1)
  1. GENOTROPIN [Suspect]
     Active Substance: SOMATROPIN
     Dosage: UNK

REACTIONS (4)
  - Device leakage [Unknown]
  - Accidental exposure to product [Unknown]
  - Exposure via skin contact [Unknown]
  - Expired device used [Unknown]

NARRATIVE: CASE EVENT DATE: 20240606
